FAERS Safety Report 8774804 (Version 2)
Quarter: 2013Q3

REPORT INFORMATION
  Report Type: Report from Study
  Country: JP (occurrence: JP)
  Receive Date: 20120910
  Receipt Date: 20130823
  Transmission Date: 20140515
  Serious: Yes (Death, Life-Threatening)
  Sender: FDA-Public Use
  Company Number: JP-MERCK-1202USA01587

PATIENT
  Age: 78 Year
  Sex: Male

DRUGS (10)
  1. ZOLINZA CAPSULES 100MG [Suspect]
     Indication: MYCOSIS FUNGOIDES
     Dosage: 400 MG, QD
     Route: 048
     Dates: start: 20111111, end: 20111115
  2. ZOLINZA CAPSULES 100MG [Suspect]
     Dosage: 100 MG, QD
     Route: 048
     Dates: start: 20111206, end: 20111215
  3. ZOLINZA CAPSULES 100MG [Suspect]
     Dosage: 200 MG, QD
     Route: 048
     Dates: start: 20111216, end: 20120124
  4. ANTEBATE [Concomitant]
     Indication: MYCOSIS FUNGOIDES
     Dosage: DIVIDED DOSE FREQUENCY U. FORMULATION: OIT
     Route: 061
     Dates: start: 20111027, end: 20120125
  5. GLUFAST [Concomitant]
     Indication: DIABETES MELLITUS
     Dosage: 10 MG, TID
     Route: 048
     Dates: end: 20120124
  6. ALLELOCK [Concomitant]
     Indication: PRURITUS
     Dosage: 5 MG, QD
     Route: 048
     Dates: end: 20120124
  7. TAKEPRON [Concomitant]
     Indication: PROPHYLAXIS
     Dosage: 15 MG, QD
     Route: 048
     Dates: end: 20120124
  8. LOXONIN [Concomitant]
     Indication: MYCOSIS FUNGOIDES
     Dosage: 60 MG, BID
     Route: 048
     Dates: end: 20120124
  9. PREDNISOLONE [Concomitant]
     Indication: MYCOSIS FUNGOIDES
     Dosage: 10 MG, BID
     Route: 048
     Dates: start: 20111228, end: 20120124
  10. PREDNISOLONE [Concomitant]
     Dosage: 20 MG, QD
     Route: 048

REACTIONS (2)
  - Acute respiratory failure [Fatal]
  - Renal disorder [Recovering/Resolving]
